FAERS Safety Report 13972100 (Version 1)
Quarter: 2017Q3

REPORT INFORMATION
  Report Type: Spontaneous
  Country: US (occurrence: US)
  Receive Date: 20170914
  Receipt Date: 20170914
  Transmission Date: 20171128
  Serious: Yes (Other)
  Sender: FDA-Public Use
  Company Number: US-ASTRAZENECA-2017SE91406

PATIENT
  Age: 16818 Day
  Sex: Female
  Weight: 93.9 kg

DRUGS (14)
  1. SERTRALINE [Concomitant]
     Active Substance: SERTRALINE HYDROCHLORIDE
     Indication: ANXIETY
     Dates: start: 2017
  2. SERTRALINE [Concomitant]
     Active Substance: SERTRALINE HYDROCHLORIDE
     Indication: DEPRESSION
     Dates: start: 2017
  3. FASLODEX [Suspect]
     Active Substance: FULVESTRANT
     Route: 030
  4. IBRANCE [Suspect]
     Active Substance: PALBOCICLIB
     Indication: METASTASES TO BONE
     Route: 048
     Dates: start: 201703, end: 201705
  5. IBRANCE [Suspect]
     Active Substance: PALBOCICLIB
     Indication: NEOPLASM MALIGNANT
     Dosage: 75.0MG UNKNOWN
     Route: 048
     Dates: start: 20170607, end: 20170718
  6. IBRANCE [Suspect]
     Active Substance: PALBOCICLIB
     Indication: NEOPLASM MALIGNANT
     Dosage: 100.0MG UNKNOWN
     Route: 048
     Dates: start: 201705, end: 201706
  7. XGEVA [Concomitant]
     Active Substance: DENOSUMAB
     Indication: BONE LOSS
  8. IBRANCE [Suspect]
     Active Substance: PALBOCICLIB
     Indication: METASTASES TO BONE
     Dosage: 100.0MG UNKNOWN
     Route: 048
     Dates: start: 201705, end: 201706
  9. CENTRUM [Suspect]
     Active Substance: VITAMINS
     Indication: SUPPLEMENTATION THERAPY
     Dosage: TWO GUMMIES, BY MOUTH, ONCE A DAY
     Route: 048
     Dates: start: 2017, end: 20170803
  10. CALTRATE CHEWABLE [Concomitant]
     Indication: MINERAL SUPPLEMENTATION
  11. ARIMIDEX [Suspect]
     Active Substance: ANASTROZOLE
     Indication: METASTASES TO BONE
     Dosage: DOSE UNKNOWN
     Route: 048
  12. IBRANCE [Suspect]
     Active Substance: PALBOCICLIB
     Indication: NEOPLASM MALIGNANT
     Route: 048
     Dates: start: 201703, end: 201705
  13. IBRANCE [Suspect]
     Active Substance: PALBOCICLIB
     Indication: METASTASES TO BONE
     Dosage: 75.0MG UNKNOWN
     Route: 048
     Dates: start: 20170607, end: 20170718
  14. RADIATION [Concomitant]
     Active Substance: RADIATION THERAPY
     Dates: start: 20170406

REACTIONS (4)
  - Drug ineffective [Unknown]
  - Product lot number issue [Unknown]
  - Anxiety [Unknown]
  - Neutropenia [Not Recovered/Not Resolved]

NARRATIVE: CASE EVENT DATE: 20170410
